FAERS Safety Report 25543738 (Version 2)
Quarter: 2025Q4

REPORT INFORMATION
  Report Type: Report from Study
  Country: CA (occurrence: CA)
  Receive Date: 20250711
  Receipt Date: 20251226
  Transmission Date: 20260117
  Serious: Yes (Other)
  Sender: TAKEDA
  Company Number: CA-TAKEDA-2017TUS025259

PATIENT
  Age: 32 Year
  Sex: Female

DRUGS (4)
  1. VEDOLIZUMAB [Suspect]
     Active Substance: VEDOLIZUMAB
     Indication: Crohn^s disease
     Dosage: 300 MILLIGRAM
  2. VEDOLIZUMAB [Suspect]
     Active Substance: VEDOLIZUMAB
     Indication: Crohn^s disease
     Dosage: 108 MILLIGRAM, Q2WEEKS
     Dates: start: 20250220
  3. MESALAMINE [Concomitant]
     Active Substance: MESALAMINE
     Dosage: UNK
  4. OZEMPIC [Concomitant]
     Active Substance: SEMAGLUTIDE
     Dosage: 0.5 MILLILITER, 1/WEEK

REACTIONS (5)
  - Kidney infection [Recovered/Resolved]
  - Renal mass [Unknown]
  - Diarrhoea [Not Recovered/Not Resolved]
  - Faeces soft [Unknown]
  - Arthralgia [Not Recovered/Not Resolved]

NARRATIVE: CASE EVENT DATE: 20170101
